FAERS Safety Report 8151516-6 (Version None)
Quarter: 2012Q1

REPORT INFORMATION
  Report Type: 
  Country: None (occurrence: None)
  Receive Date: 20120220
  Receipt Date: 20120208
  Transmission Date: 20120608
  Serious: Yes (Hospitalization)
  Sender: FDA-Public Use
  Company Number: US-ELI_LILLY_AND_COMPANY-US201201001613

PATIENT
  Sex: Male
  Weight: 68 kg

DRUGS (14)
  1. LOVAZA [Concomitant]
  2. VITAMIN D [Concomitant]
  3. IRON [Concomitant]
  4. FOLIC ACID [Concomitant]
  5. FORTEO [Suspect]
     Dosage: 20 UG, QD
     Route: 058
     Dates: start: 20110601, end: 20111201
  6. MATURE MULTIVITAMINS [Concomitant]
  7. LIPITOR [Concomitant]
  8. ASCORBIC ACID [Concomitant]
  9. FORTEO [Suspect]
     Indication: OSTEOPOROSIS
     Dosage: 20 UG, QD
     Route: 058
     Dates: start: 20091101, end: 20110401
  10. ZINC SULFATE [Concomitant]
  11. ASPIRIN [Concomitant]
  12. DILTIAZEM HCL [Concomitant]
  13. LEVOXYL [Concomitant]
  14. ACID REDUCER [Concomitant]

REACTIONS (3)
  - HERPES SIMPLEX [None]
  - TESTICULAR PAIN [None]
  - IMMUNOSUPPRESSION [None]
